FAERS Safety Report 5330639-0 (Version None)
Quarter: 2007Q2

REPORT INFORMATION
  Report Type: 
  Country: None (occurrence: None)
  Receive Date: 20070517
  Receipt Date: 20070509
  Transmission Date: 20071010
  Serious: Yes (Hospitalization, Other)
  Sender: FDA-Public Use
  Company Number: 2007SP006930

PATIENT
  Age: 60 Year
  Sex: Female

DRUGS (1)
  1. INTRON A [Suspect]
     Indication: MALIGNANT MELANOMA
     Dates: end: 20070301

REACTIONS (7)
  - AUTOIMMUNE THYROIDITIS [None]
  - CARPAL TUNNEL SYNDROME [None]
  - INSOMNIA [None]
  - MUSCULOSKELETAL PAIN [None]
  - MYALGIA [None]
  - RHEUMATOID FACTOR POSITIVE [None]
  - SCLERODERMA [None]
